FAERS Safety Report 9170434 (Version 1)
Quarter: 2013Q1

REPORT INFORMATION
  Report Type: Spontaneous
  Country: US (occurrence: None)
  Receive Date: 20130315
  Receipt Date: 20130315
  Transmission Date: 20140127
  Serious: Yes (Other)
  Sender: FDA-Public Use
  Company Number: None

PATIENT
  Age: 47 Year
  Sex: Female
  Weight: 79.38 kg

DRUGS (1)
  1. CIPROFLOXACIN 500 MG BAY [Suspect]
     Indication: CERVIX INFLAMMATION
     Dosage: ONE TABLET EVERY 12 HOURS PO
     Route: 048

REACTIONS (3)
  - Tendon pain [None]
  - Muscle spasms [None]
  - Swelling [None]
